FAERS Safety Report 10381897 (Version 2)
Quarter: 2015Q1

REPORT INFORMATION
  Report Type: Report from Study
  Country: JP (occurrence: JP)
  Receive Date: 20140813
  Receipt Date: 20150326
  Transmission Date: 20150720
  Serious: Yes (Death, Other)
  Sender: FDA-Public Use
  Company Number: JP-GLAXOSMITHKLINE-B1023088A

PATIENT
  Age: 77 Year
  Sex: Male
  Weight: 45 kg

DRUGS (12)
  1. CARBENIN [Suspect]
     Active Substance: BETAMIPRON\PANIPENEM
     Dosage: 0.5 G, BID
     Route: 041
     Dates: start: 20131202, end: 20131212
  2. PREDNISOLONE. [Concomitant]
     Active Substance: PREDNISOLONE
     Indication: INTERSTITIAL LUNG DISEASE
     Route: 048
     Dates: start: 20130730, end: 20130831
  3. MORPHINE HYDROCHLORIDE HYDRATE [Concomitant]
     Active Substance: MORPHINE HYDROCHLORIDE
     Indication: INTERSTITIAL LUNG DISEASE
     Route: 051
     Dates: start: 20131211, end: 20131212
  4. SOL-MELCORT [Concomitant]
     Active Substance: METHYLPREDNISOLONE SODIUM SUCCINATE
     Dosage: 500 MG, QD
     Route: 042
     Dates: start: 20131129, end: 20131201
  5. ATOVAQUONE. [Suspect]
     Active Substance: ATOVAQUONE
     Indication: PNEUMOCYSTIS JIROVECII PNEUMONIA
     Dosage: 750 MG, BID
     Route: 048
     Dates: start: 20131115, end: 20131212
  6. SOL-MELCORT [Concomitant]
     Active Substance: METHYLPREDNISOLONE SODIUM SUCCINATE
     Dosage: 500 MG, QD
     Route: 042
     Dates: start: 20131209, end: 20131211
  7. PREDONINE [Concomitant]
     Active Substance: PREDNISOLONE\PREDNISOLONE ACETATE\PREDNISOLONE SODIUM SUCCINATE
     Indication: INTERSTITIAL LUNG DISEASE
     Dosage: 40 MG, QD
     Route: 051
     Dates: start: 20131208, end: 20131209
  8. PREDNISOLONE. [Concomitant]
     Active Substance: PREDNISOLONE
     Route: 048
     Dates: start: 20130901
  9. SERENACE [Concomitant]
     Active Substance: HALOPERIDOL
     Indication: PAIN
     Route: 051
     Dates: start: 20131211, end: 20131212
  10. GRACEVIT [Concomitant]
     Active Substance: SITAFLOXACIN
     Route: 048
     Dates: start: 20131126, end: 20131202
  11. SOL-MELCORT [Concomitant]
     Active Substance: METHYLPREDNISOLONE SODIUM SUCCINATE
     Indication: INTERSTITIAL LUNG DISEASE
     Dosage: 500 MG, QD
     Route: 042
     Dates: start: 20131024, end: 20131026
  12. ROCEPHIN [Concomitant]
     Active Substance: CEFTRIAXONE SODIUM
     Route: 042
     Dates: start: 20131116, end: 20131125

REACTIONS (2)
  - Respiratory failure [Fatal]
  - Hepatic function abnormal [Unknown]

NARRATIVE: CASE EVENT DATE: 20131129
